FAERS Safety Report 15266397 (Version 1)
Quarter: 2018Q3

REPORT INFORMATION
  Report Type: Spontaneous
  Country: FR (occurrence: FR)
  Receive Date: 20180810
  Receipt Date: 20180810
  Transmission Date: 20181010
  Serious: Yes (Life-Threatening)
  Sender: FDA-Public Use
  Company Number: FR-ABBVIE-18K-056-2446540-00

PATIENT
  Age: 27 Year
  Sex: Male
  Weight: 65 kg

DRUGS (1)
  1. HUMIRA [Suspect]
     Active Substance: ADALIMUMAB
     Indication: ANKYLOSING SPONDYLITIS
     Dosage: 2?3 INJECTIONS PER MONTH
     Route: 058
     Dates: start: 201004, end: 201511

REACTIONS (1)
  - Hodgkin^s disease lymphocyte predominance type stage IV [Recovered/Resolved]

NARRATIVE: CASE EVENT DATE: 201601
